FAERS Safety Report 24007970 (Version 1)
Quarter: 2024Q2

REPORT INFORMATION
  Report Type: Spontaneous
  Country: PL (occurrence: PL)
  Receive Date: 20240625
  Receipt Date: 20240625
  Transmission Date: 20240716
  Serious: Yes (Other)
  Sender: FDA-Public Use
  Company Number: None

PATIENT
  Age: 68 Year
  Sex: Female
  Weight: 63 kg

DRUGS (4)
  1. PROLIA [Suspect]
     Active Substance: DENOSUMAB
     Indication: Osteoporosis
     Dosage: FIRST INJECTION - 09.01.2020; SECOND INJECTION - 27.07.2020
     Route: 065
     Dates: start: 20200727, end: 20200727
  2. Structum [Concomitant]
     Route: 065
  3. GLUCOPHAGE [Concomitant]
     Active Substance: METFORMIN HYDROCHLORIDE
     Indication: Diabetes mellitus
     Dosage: 1 TABL A DAY
     Route: 048
  4. ROSUVASTATIN CALCIUM [Concomitant]
     Active Substance: ROSUVASTATIN CALCIUM
     Indication: Blood cholesterol
     Dosage: EVERY SECOND DAY
     Route: 048

REACTIONS (2)
  - Blood urine [Not Recovered/Not Resolved]
  - Bone pain [Not Recovered/Not Resolved]
